FAERS Safety Report 8450059-X (Version None)
Quarter: 2012Q2

REPORT INFORMATION
  Report Type: 
  Country: None (occurrence: None)
  Receive Date: 20120614
  Receipt Date: 20120614
  Transmission Date: 20120825
  Serious: Yes (Other)
  Sender: FDA-Public Use
  Company Number: None

PATIENT
  Sex: Female
  Weight: 61.2356 kg

DRUGS (1)
  1. NUVARING [Suspect]
     Indication: CONTRACEPTION
     Dosage: 1RING 3 WEEKS OF 4 VAG
     Route: 067
     Dates: start: 20111031, end: 20120520

REACTIONS (1)
  - PREGNANCY WITH CONTRACEPTIVE DEVICE [None]
